FAERS Safety Report 26185706 (Version 2)
Quarter: 2025Q4

REPORT INFORMATION
  Report Type: Report from Study
  Country: EU (occurrence: EU)
  Receive Date: 20251222
  Receipt Date: 20251228
  Transmission Date: 20260118
  Serious: Yes (Hospitalization)
  Sender: ABBVIE
  Company Number: EU-ABBVIE-6594719

PATIENT
  Age: 32 Year
  Sex: Female
  Weight: 80 kg

DRUGS (5)
  1. UPADACITINIB [Suspect]
     Active Substance: UPADACITINIB
     Indication: Colitis ulcerative
     Route: 048
     Dates: start: 20250129, end: 20250521
  2. UPADACITINIB [Suspect]
     Active Substance: UPADACITINIB
     Indication: Colitis ulcerative
     Route: 048
     Dates: start: 20250522, end: 20250604
  3. BUDESONIDE [Concomitant]
     Active Substance: BUDESONIDE
     Indication: Colitis ulcerative
     Route: 054
     Dates: start: 20250317, end: 202510
  4. CORTIMENT [Concomitant]
     Indication: Colitis ulcerative
     Route: 048
     Dates: start: 20250528, end: 202510
  5. VELSIPITY [Concomitant]
     Active Substance: ETRASIMOD ARGININE
     Indication: Colitis ulcerative
     Route: 048
     Dates: start: 20250703, end: 202510

REACTIONS (1)
  - Drug resistance [Recovered/Resolved with Sequelae]

NARRATIVE: CASE EVENT DATE: 20251123
